FAERS Safety Report 5937483-1 (Version None)
Quarter: 2008Q4

REPORT INFORMATION
  Report Type: 
  Country: None (occurrence: None)
  Receive Date: 20081031
  Receipt Date: 20081030
  Transmission Date: 20090506
  Serious: Yes (Death)
  Sender: FDA-Public Use
  Company Number: B0544238A

PATIENT
  Sex: Male

DRUGS (12)
  1. CHLORAMBUCIL [Suspect]
     Dates: start: 20010901
  2. BEVACIZUMAB [Suspect]
     Dates: start: 20050331
  3. RITUXIMAB [Suspect]
     Dates: start: 20050331
  4. CYCLOPHOSPHAMIDE [Suspect]
     Dates: start: 20060201, end: 20060421
  5. VINCRISTINE [Suspect]
     Dates: start: 20060201, end: 20060421
  6. PREDNISOLONE [Suspect]
     Dates: start: 20060201, end: 20060421
  7. ETOPOSIDE [Suspect]
  8. CYTARABINE [Suspect]
  9. METHOTREXATE [Suspect]
  10. CARMUSTINE [Suspect]
  11. ZEVALIN [Suspect]
     Dates: start: 20050407
  12. CHLORAMBUCIL [Concomitant]
     Dates: start: 20010901

REACTIONS (1)
  - ACUTE MYELOMONOCYTIC LEUKAEMIA [None]
